FAERS Safety Report 7863924-9 (Version None)
Quarter: 2011Q4

REPORT INFORMATION
  Report Type: 
  Country: None (occurrence: None)
  Receive Date: 20111028
  Receipt Date: 20111020
  Transmission Date: 20120403
  Serious: No
  Sender: FDA-Public Use
  Company Number: US-BIOGENIDEC-2011BI040140

PATIENT
  Age: 46 Year
  Sex: Female

DRUGS (2)
  1. AVONEX [Concomitant]
     Indication: MULTIPLE SCLEROSIS
     Route: 030
     Dates: start: 20081017
  2. TYSABRI [Suspect]
     Indication: MULTIPLE SCLEROSIS
     Route: 042
     Dates: start: 20111011

REACTIONS (9)
  - SOMNOLENCE [None]
  - BURNING SENSATION [None]
  - APATHY [None]
  - FATIGUE [None]
  - MUSCULAR WEAKNESS [None]
  - HYPOAESTHESIA [None]
  - BALANCE DISORDER [None]
  - PARAESTHESIA [None]
  - ABNORMAL SENSATION IN EYE [None]
